FAERS Safety Report 11782787 (Version 1)
Quarter: 2015Q4

REPORT INFORMATION
  Report Type: Spontaneous
  Country: SE (occurrence: SE)
  Receive Date: 20151127
  Receipt Date: 20151127
  Transmission Date: 20160305
  Serious: Yes (Hospitalization)
  Sender: FDA-Public Use
  Company Number: SE-BIOGENIDEC-2015BI156091

PATIENT
  Age: 33 Year
  Sex: Female

DRUGS (4)
  1. TYSABRI [Suspect]
     Active Substance: NATALIZUMAB
     Indication: MULTIPLE SCLEROSIS
     Route: 042
     Dates: start: 201405
  2. LACTULOSE. [Concomitant]
     Active Substance: LACTULOSE
  3. DICLOFENAC [Concomitant]
     Active Substance: DICLOFENAC
  4. DIMETICONE [Concomitant]
     Active Substance: DIMETHICONE

REACTIONS (2)
  - Ectopic pregnancy [Recovered/Resolved with Sequelae]
  - Maternal exposure during pregnancy [Recovered/Resolved]

NARRATIVE: CASE EVENT DATE: 20150819
